FAERS Safety Report 19238893 (Version 2)
Quarter: 2021Q2

REPORT INFORMATION
  Report Type: Other
  Country: US (occurrence: US)
  Receive Date: 20210510
  Receipt Date: 20210514
  Transmission Date: 20210717
  Serious: No
  Sender: FDA-Public Use
  Company Number: US-ROCHE-2825460

PATIENT
  Age: 39 Year
  Sex: Male
  Weight: 112.14 kg

DRUGS (1)
  1. OCREVUS [Suspect]
     Active Substance: OCRELIZUMAB
     Indication: MULTIPLE SCLEROSIS
     Dosage: DATE OF TREATMENT: 10/JUN/2019,  26/DEC/2019, 15/JUN/2020, 02/DEC/2020,
     Route: 042

REACTIONS (2)
  - Somnolence [Unknown]
  - COVID-19 [Recovered/Resolved]

NARRATIVE: CASE EVENT DATE: 20210212
